FAERS Safety Report 9919995 (Version 2)
Quarter: 2014Q2

REPORT INFORMATION
  Report Type: Spontaneous
  Country: DE (occurrence: DE)
  Receive Date: 20140224
  Receipt Date: 20140523
  Transmission Date: 20141212
  Serious: Yes (Other)
  Sender: FDA-Public Use
  Company Number: PHHY2014DE021855

PATIENT
  Sex: Male

DRUGS (2)
  1. ZOMETA [Suspect]
     Indication: PROSTATE CANCER METASTATIC
     Dosage: UNK EVERY 4 WEEKS
  2. ZOLADEX [Concomitant]
     Dosage: UNK UKN, UNK

REACTIONS (2)
  - General physical health deterioration [Unknown]
  - Tooth disorder [Unknown]
